FAERS Safety Report 17660538 (Version 3)
Quarter: 2021Q2

REPORT INFORMATION
  Report Type: Spontaneous
  Country: US (occurrence: US)
  Receive Date: 20200413
  Receipt Date: 20210512
  Transmission Date: 20210716
  Serious: Yes (Hospitalization)
  Sender: FDA-Public Use
  Company Number: US-PFIZER INC-2020149088

PATIENT
  Age: 57 Year
  Sex: Female
  Weight: 102 kg

DRUGS (1)
  1. XELJANZ [Suspect]
     Active Substance: TOFACITINIB CITRATE
     Indication: RHEUMATOID ARTHRITIS
     Dosage: 5 MG, 2X/DAY
     Route: 048
     Dates: start: 202002, end: 2020

REACTIONS (7)
  - Condition aggravated [Not Recovered/Not Resolved]
  - Sinusitis [Unknown]
  - Asthma [Unknown]
  - Illness [Not Recovered/Not Resolved]
  - Bronchitis [Unknown]
  - Influenza [Unknown]
  - Pain [Unknown]

NARRATIVE: CASE EVENT DATE: 2020
